FAERS Safety Report 9133969 (Version 1)
Quarter: 2013Q1

REPORT INFORMATION
  Report Type: Spontaneous
  Country: US (occurrence: US)
  Receive Date: 20130304
  Receipt Date: 20130304
  Transmission Date: 20140127
  Serious: No
  Sender: FDA-Public Use
  Company Number: US-009507513-1302USA011851

PATIENT
  Age: 69 Year
  Sex: Female

DRUGS (1)
  1. ZOCOR [Suspect]
     Dosage: LOWEST POSSIBLE DOSE
     Route: 048
     Dates: start: 200302

REACTIONS (1)
  - Blood bilirubin increased [Not Recovered/Not Resolved]
